FAERS Safety Report 23222801 (Version 1)
Quarter: 2023Q4

REPORT INFORMATION
  Report Type: Spontaneous
  Country: US (occurrence: US)
  Receive Date: 20231123
  Receipt Date: 20231123
  Transmission Date: 20240109
  Serious: Yes (Life-Threatening)
  Sender: FDA-Public Use
  Company Number: US-TEVA-2023-US-2946886

PATIENT
  Age: 12 Year
  Sex: Male

DRUGS (1)
  1. EPINEPHRINE [Suspect]
     Active Substance: EPINEPHRINE
     Indication: Cardiac arrest
     Dosage: SIX DOSES WERE ADMINISTERED , ADDITIONAL INFO: ROUTE: {INTRAOSSEOUS}
     Route: 050

REACTIONS (1)
  - Drug ineffective [Unknown]
